FAERS Safety Report 15084702 (Version 2)
Quarter: 2018Q4

REPORT INFORMATION
  Report Type: Spontaneous
  Country: US (occurrence: US)
  Receive Date: 20180628
  Receipt Date: 20181005
  Transmission Date: 20190204
  Serious: Yes (Other)
  Sender: FDA-Public Use
  Company Number: US-TAKEDA-2018TUS021009

PATIENT

DRUGS (56)
  1. PREVACID [Suspect]
     Active Substance: LANSOPRAZOLE
     Indication: GASTROOESOPHAGEAL REFLUX DISEASE
     Dosage: UNK
     Route: 048
  2. OMEPRAZOLE. [Suspect]
     Active Substance: OMEPRAZOLE
     Indication: PRODUCT USED FOR UNKNOWN INDICATION
     Dosage: 40 MG, QD
     Route: 048
     Dates: start: 2015, end: 2016
  3. RANITIDINE. [Concomitant]
     Active Substance: RANITIDINE
     Indication: SLEEP DISORDER
     Dosage: UNK
     Dates: start: 2018
  4. K C L [Concomitant]
     Indication: MINERAL SUPPLEMENTATION
     Dosage: UNK
     Dates: start: 2015
  5. MAGNESIUM HYDROXIDE. [Concomitant]
     Active Substance: MAGNESIUM HYDROXIDE
  6. TRAZODONE [Concomitant]
     Active Substance: TRAZODONE HYDROCHLORIDE
     Indication: SLEEP DISORDER
     Dosage: UNK
     Dates: start: 2018
  7. PRILOSEC [Suspect]
     Active Substance: OMEPRAZOLE MAGNESIUM
     Indication: PRODUCT USED FOR UNKNOWN INDICATION
     Dosage: UNK
     Route: 048
  8. ASPIRIN                            /00002701/ [Concomitant]
     Active Substance: ASPIRIN
     Indication: CARDIOVASCULAR DISORDER
     Dosage: UNK
     Dates: start: 2006
  9. VITAMIN D3 [Concomitant]
     Active Substance: CHOLECALCIFEROL
     Indication: SUPPLEMENTATION THERAPY
     Dosage: UNK
     Dates: start: 2016
  10. ZANTAC [Concomitant]
     Active Substance: RANITIDINE HYDROCHLORIDE
     Dosage: UNK
     Dates: start: 2016, end: 2018
  11. FAMOTIDINE. [Concomitant]
     Active Substance: FAMOTIDINE
  12. BUPROPION. [Concomitant]
     Active Substance: BUPROPION
     Indication: DEPRESSION
  13. CARVEDILOL. [Concomitant]
     Active Substance: CARVEDILOL
     Indication: HYPERTENSION
     Dosage: UNK
     Dates: start: 2018
  14. LANSOPRAZOLE. [Suspect]
     Active Substance: LANSOPRAZOLE
     Indication: PRODUCT USED FOR UNKNOWN INDICATION
     Dosage: UNK
     Route: 048
  15. TYLENOL [Concomitant]
     Active Substance: ACETAMINOPHEN
     Indication: PAIN
     Dosage: UNK
  16. BENADRYL [Concomitant]
     Active Substance: DIPHENHYDRAMINE HYDROCHLORIDE
     Indication: HYPERSENSITIVITY
     Dosage: UNK
     Dates: start: 2000
  17. RANITIDINE. [Concomitant]
     Active Substance: RANITIDINE
     Dosage: UNK
     Dates: start: 2018
  18. RANITIDINE. [Concomitant]
     Active Substance: RANITIDINE
     Dosage: UNK
     Dates: start: 2015, end: 2016
  19. TUMS                               /00193601/ [Concomitant]
     Active Substance: CALCIUM CARBONATE\MAGNESIUM CARBONATE\MAGNESIUM TRISILICATE
     Dosage: UNK
     Dates: end: 2000
  20. PREVACID 24 HR [Suspect]
     Active Substance: LANSOPRAZOLE
     Indication: PRODUCT USED FOR UNKNOWN INDICATION
     Dosage: UNK
     Route: 048
  21. PANTOPRAZOLE [Suspect]
     Active Substance: PANTOPRAZOLE
     Indication: PRODUCT USED FOR UNKNOWN INDICATION
     Dosage: UNK
     Route: 048
  22. NASONEX [Concomitant]
     Active Substance: MOMETASONE FUROATE
     Indication: HYPERSENSITIVITY
     Dosage: UNK
  23. CYMBALTA [Concomitant]
     Active Substance: DULOXETINE HYDROCHLORIDE
     Indication: DEPRESSION
     Dosage: UNK
     Dates: start: 2006
  24. GAVISCON                           /00237601/ [Concomitant]
     Active Substance: ALUMINUM HYDROXIDE\MAGNESIUM CARBONATE
     Dosage: UNK
     Dates: end: 2000
  25. PANTOPRAZOLE [Suspect]
     Active Substance: PANTOPRAZOLE
     Dosage: 40 MG, DAILY
     Route: 048
     Dates: start: 2006, end: 2013
  26. RANITIDINE. [Concomitant]
     Active Substance: RANITIDINE
     Indication: URINARY RETENTION
     Dosage: UNK
     Dates: start: 2018
  27. RANITIDINE. [Concomitant]
     Active Substance: RANITIDINE
     Dosage: UNK
     Dates: start: 2018
  28. NEURONTIN [Concomitant]
     Active Substance: GABAPENTIN
     Indication: SPINAL PAIN
     Dosage: UNK
     Dates: start: 2013
  29. ALKA SELTZER                       /00002701/ [Concomitant]
     Active Substance: ASPIRIN
     Dosage: UNK
     Dates: end: 2000
  30. ATORVASTATIN [Concomitant]
     Active Substance: ATORVASTATIN
     Indication: HYPERCHOLESTEROLAEMIA
     Dosage: UNK
     Dates: start: 2018
  31. PRAVASTATIN SODIUM. [Concomitant]
     Active Substance: PRAVASTATIN SODIUM
     Indication: HYPERCHOLESTEROLAEMIA
  32. ESOMEPRAZOLE. [Suspect]
     Active Substance: ESOMEPRAZOLE MAGNESIUM
     Indication: GASTROOESOPHAGEAL REFLUX DISEASE
     Dosage: 40 MG, QD
     Route: 048
     Dates: start: 2006, end: 2013
  33. CALCIUM CARBONATE. [Concomitant]
     Active Substance: CALCIUM CARBONATE
     Dosage: UNK
  34. PSYLLIUM                           /01328801/ [Concomitant]
     Active Substance: PLANTAGO SEED
     Indication: SUPPLEMENTATION THERAPY
     Dosage: UNK
     Dates: start: 2018
  35. RANITIDINE. [Concomitant]
     Active Substance: RANITIDINE
     Indication: GASTROOESOPHAGEAL REFLUX DISEASE
     Dosage: UNK
     Dates: start: 2018
  36. RANITIDINE. [Concomitant]
     Active Substance: RANITIDINE
     Indication: BLOOD PRESSURE ABNORMAL
     Dosage: UNK
  37. BUPRENORPHINE. [Concomitant]
     Active Substance: BUPRENORPHINE
     Indication: PAIN
     Dosage: UNK
     Dates: start: 2018
  38. METHOCARBAMOL. [Concomitant]
     Active Substance: METHOCARBAMOL
     Indication: MUSCLE SPASMS
     Dosage: UNK
     Dates: start: 2018
  39. MIRTAZAPINE. [Concomitant]
     Active Substance: MIRTAZAPINE
     Indication: DEPRESSION
  40. FENOFIBRATE. [Concomitant]
     Active Substance: FENOFIBRATE
     Indication: HYPERCHOLESTEROLAEMIA
     Dosage: UNK
  41. NEXIUM [Suspect]
     Active Substance: ESOMEPRAZOLE MAGNESIUM
     Indication: GASTROOESOPHAGEAL REFLUX DISEASE
     Dosage: 40 MG, DAILY
     Route: 048
     Dates: start: 2006, end: 2013
  42. CENTRUM SILVER                     /02363801/ [Concomitant]
     Active Substance: MINERALS\VITAMINS
     Indication: VITAMIN SUPPLEMENTATION
     Dosage: UNK
     Dates: start: 2017
  43. RANITIDINE. [Concomitant]
     Active Substance: RANITIDINE
     Indication: DYSPEPSIA
     Dosage: UNK
     Dates: start: 2018
  44. RANITIDINE. [Concomitant]
     Active Substance: RANITIDINE
     Indication: MUSCLE RELAXANT THERAPY
     Dosage: UNK
     Dates: start: 2018
  45. RANITIDINE. [Concomitant]
     Active Substance: RANITIDINE
     Indication: BLOOD CHOLESTEROL
     Dosage: UNK
     Dates: start: 2018
  46. SENOKOT [Concomitant]
     Active Substance: SENNOSIDES
     Indication: CONSTIPATION
     Dosage: UNK
     Dates: start: 2016
  47. PLAVIX [Concomitant]
     Active Substance: CLOPIDOGREL BISULFATE
     Indication: ANTICOAGULANT THERAPY
     Dosage: UNK
  48. MYLANTA [Concomitant]
     Active Substance: ALUMINUM HYDROXIDE\DIMETHICONE\MAGNESIUM HYDROXIDE
     Dosage: UNK
     Dates: end: 2000
  49. TAMSULOSIN [Concomitant]
     Active Substance: TAMSULOSIN
     Indication: URINARY RETENTION
     Dosage: UNK
     Dates: start: 2018
  50. PANTOPRAZOLE [Suspect]
     Active Substance: PANTOPRAZOLE
     Dosage: 40 MG, DAILY
     Route: 048
     Dates: start: 2015, end: 2016
  51. NEXIUM 24HR [Suspect]
     Active Substance: ESOMEPRAZOLE MAGNESIUM
     Indication: PRODUCT USED FOR UNKNOWN INDICATION
     Dosage: UNK
     Route: 048
  52. LASIX [Concomitant]
     Active Substance: FUROSEMIDE
     Indication: FLUID RETENTION
     Dosage: UNK
     Dates: start: 2008
  53. C                                  /00008001/ [Concomitant]
     Indication: SUPPLEMENTATION THERAPY
     Dosage: UNK
     Dates: start: 2016
  54. RANITIDINE. [Concomitant]
     Active Substance: RANITIDINE
     Indication: PAIN
     Dosage: UNK
  55. ROLAIDS                            /00069401/ [Concomitant]
     Active Substance: DIHYDROXYALUMINUM SODIUM CARBONATE
     Dosage: UNK
     Dates: end: 2000
  56. RISPERIDONE. [Concomitant]
     Active Substance: RISPERIDONE
     Indication: SLEEP DISORDER
     Dosage: UNK
     Dates: start: 2018

REACTIONS (3)
  - Chronic kidney disease [Not Recovered/Not Resolved]
  - Anxiety [Unknown]
  - Depression [Unknown]

NARRATIVE: CASE EVENT DATE: 2009
